FAERS Safety Report 4473127-6 (Version None)
Quarter: 2004Q4

REPORT INFORMATION
  Report Type: 
  Country: None (occurrence: None)
  Receive Date: 20041008
  Receipt Date: 20041004
  Transmission Date: 20050328
  Serious: Yes (Death)
  Sender: FDA-Public Use
  Company Number: USA-2004-0017029

PATIENT
  Age: 7 Month
  Weight: 6.6 kg

DRUGS (2)
  1. MS CONTIN [Suspect]
     Dosage: SEE IMAGE
  2. KAPANOL (MORPHINE SULFATE) [Suspect]

REACTIONS (1)
  - TOXICOLOGIC TEST ABNORMAL [None]
